FAERS Safety Report 19596723 (Version 2)
Quarter: 2021Q3

REPORT INFORMATION
  Report Type: Spontaneous
  Country: NL (occurrence: NL)
  Receive Date: 20210722
  Receipt Date: 20210812
  Transmission Date: 20211014
  Serious: Yes (Other)
  Sender: FDA-Public Use
  Company Number: NL-MYLANLABS-2021M1043645

PATIENT
  Sex: Female
  Weight: 77 kg

DRUGS (1)
  1. EFUDIX [Suspect]
     Active Substance: FLUOROURACIL
     Indication: ACTINIC KERATOSIS
     Dosage: 1 DOSAGE FORM 12 HOURS (TWICE DAILY WEEKS)
     Dates: start: 202011

REACTIONS (2)
  - Staphylococcal scalded skin syndrome [Not Recovered/Not Resolved]
  - Pemphigus [Not Recovered/Not Resolved]
